FAERS Safety Report 6118543-1 (Version None)
Quarter: 2009Q1

REPORT INFORMATION
  Report Type: 
  Country: None (occurrence: None)
  Receive Date: 20090314
  Receipt Date: 20090218
  Transmission Date: 20090719
  Serious: No
  Sender: FDA-Public Use
  Company Number: US-ABBOTT-09P-163-0558540-00

PATIENT
  Sex: Female
  Weight: 66.284 kg

DRUGS (7)
  1. HUMIRA [Suspect]
     Indication: RHEUMATOID ARTHRITIS
     Route: 058
     Dates: start: 20090203
  2. HUMIRA [Suspect]
     Indication: OSTEOARTHRITIS
  3. ALLEGRA [Concomitant]
     Indication: HYPERSENSITIVITY
  4. CLONAZEPAM [Concomitant]
     Indication: GASTROINTESTINAL DISORDER
  5. BENTYL [Concomitant]
     Indication: GASTROINTESTINAL DISORDER
  6. LEVOTHYROXINE SODIUM [Concomitant]
     Indication: HYPOTHYROIDISM
  7. LEXAPRO [Concomitant]
     Indication: ANXIETY

REACTIONS (6)
  - HEADACHE [None]
  - INJECTION SITE ERYTHEMA [None]
  - INJECTION SITE PRURITUS [None]
  - NASOPHARYNGITIS [None]
  - OROPHARYNGEAL PAIN [None]
  - RASH [None]
